FAERS Safety Report 6265514-0 (Version None)
Quarter: 2009Q3

REPORT INFORMATION
  Report Type: 
  Country: None (occurrence: None)
  Receive Date: 20090709
  Receipt Date: 20090709
  Transmission Date: 20100115
  Serious: Yes (Other)
  Sender: FDA-Public Use
  Company Number: None

PATIENT
  Sex: Female
  Weight: 65.318 kg

DRUGS (1)
  1. TOPIRAMATE [Suspect]
     Indication: NERVE INJURY
     Dosage: 1ST WEEK; 1 PILL DAILY PO, 2ND WEEK; 2 PILLS DAILY PO
     Route: 048
     Dates: start: 20090602, end: 20090616

REACTIONS (6)
  - CRYING [None]
  - DYSARTHRIA [None]
  - DYSKINESIA [None]
  - IMPAIRED DRIVING ABILITY [None]
  - MENTAL IMPAIRMENT [None]
  - VISION BLURRED [None]
